FAERS Safety Report 5121700-4 (Version None)
Quarter: 2006Q4

REPORT INFORMATION
  Report Type: 
  Country: None (occurrence: None)
  Receive Date: 20061006
  Receipt Date: 20061002
  Transmission Date: 20070319
  Serious: Yes (Hospitalization)
  Sender: FDA-Public Use
  Company Number: JP-GLAXOSMITHKLINE-B0440746A

PATIENT
  Age: 70 Year
  Sex: Female

DRUGS (16)
  1. CARVEDILOL [Suspect]
     Indication: CARDIAC FAILURE CHRONIC
     Dosage: 1.25MG TWICE PER DAY
     Route: 048
     Dates: start: 20030528
  2. LASIX [Suspect]
     Dosage: 80MG TWICE PER DAY
     Route: 048
     Dates: start: 20030518, end: 20050624
  3. TANATRIL [Suspect]
     Route: 048
     Dates: start: 20030507
  4. AMIODARONE HCL [Suspect]
     Dosage: 200MG TWICE PER DAY
     Route: 048
     Dates: start: 20050715
  5. THYRADIN-S [Concomitant]
     Dates: start: 20030507
  6. ALFACALCIDOL [Concomitant]
     Dates: start: 20030507
  7. ALLOPURINOL [Concomitant]
     Dates: start: 20030507
  8. CIMETIDINE [Concomitant]
     Dates: start: 20030507
  9. ULCERMIN [Concomitant]
     Dates: start: 20030507
  10. NEUQUINON [Concomitant]
     Dates: start: 20030507
  11. GANATON [Concomitant]
     Dates: start: 20030507
  12. RIZE [Concomitant]
     Dates: start: 20030507
  13. MAGNESIUM OXIDE [Concomitant]
     Dates: start: 20030507
  14. CALCIUM LACTATE [Concomitant]
     Dates: start: 20030507
  15. DOBUTAMINE HCL [Concomitant]
     Dates: start: 20030507
  16. WARFARIN SODIUM [Concomitant]
     Dates: start: 20030507

REACTIONS (2)
  - CARDIAC FAILURE [None]
  - VENTRICULAR TACHYCARDIA [None]
